FAERS Safety Report 10313155 (Version 1)
Quarter: 2014Q3

REPORT INFORMATION
  Report Type: Spontaneous
  Country: TR (occurrence: TR)
  Receive Date: 20140718
  Receipt Date: 20140718
  Transmission Date: 20150326
  Serious: Yes (Death, Hospitalization, Other)
  Sender: FDA-Public Use
  Company Number: TR-ROXANE LABORATORIES, INC.-2014-RO-01067RO

PATIENT
  Age: 55 Year
  Sex: Female

DRUGS (2)
  1. OXCARBAZEPINE. [Suspect]
     Active Substance: OXCARBAZEPINE
     Indication: EPILEPSY
     Dosage: 600 MG
     Route: 065
  2. PREDNISOLONE. [Suspect]
     Active Substance: PREDNISOLONE
     Indication: VANISHING BILE DUCT SYNDROME
     Dosage: 60 MG
     Route: 048

REACTIONS (3)
  - Septic shock [Fatal]
  - Histiocytosis haematophagic [Unknown]
  - Vanishing bile duct syndrome [Unknown]
